FAERS Safety Report 6176253-9 (Version None)
Quarter: 2009Q2

REPORT INFORMATION
  Report Type: 
  Country: None (occurrence: None)
  Receive Date: 20090501
  Receipt Date: 20090424
  Transmission Date: 20091009
  Serious: Yes (Other)
  Sender: FDA-Public Use
  Company Number: B0562037A

PATIENT
  Sex: Female

DRUGS (11)
  1. ARIXTRA [Suspect]
     Indication: THROMBOSIS PROPHYLAXIS
     Dosage: 2.5MG PER DAY
     Route: 058
     Dates: start: 20080222, end: 20090224
  2. AMLODIPINE [Concomitant]
     Route: 048
  3. SPIRONOLACTONE [Concomitant]
     Route: 048
  4. FUROSEMIDE [Concomitant]
     Dosage: 40MG PER DAY
     Route: 048
  5. TEPRENONE [Concomitant]
     Route: 048
  6. SENNOSIDE [Concomitant]
     Dosage: 12MG PER DAY
     Route: 048
  7. LOXOPROFEN SODIUM [Concomitant]
     Route: 065
  8. NORVASC [Concomitant]
     Dosage: 5MG PER DAY
     Route: 048
  9. CYTARABINE [Concomitant]
     Dosage: 50MG PER DAY
     Route: 048
  10. SEFTAC [Concomitant]
     Dosage: 1.5MG PER DAY
     Route: 048
  11. KENTAN [Concomitant]
     Dosage: 180MG PER DAY
     Route: 048
     Dates: start: 20090222, end: 20090226

REACTIONS (3)
  - BLOOD PRESSURE DECREASED [None]
  - HAEMORRHAGIC ANAEMIA [None]
  - SHOCK [None]
